FAERS Safety Report 5526879-8 (Version None)
Quarter: 2007Q4

REPORT INFORMATION
  Report Type: 
  Country: None (occurrence: None)
  Receive Date: 20071120
  Receipt Date: 20070521
  Transmission Date: 20080405
  Serious: Yes (Other)
  Sender: FDA-Public Use
  Company Number: 2006155139

PATIENT
  Age: 58 Year
  Sex: Female
  Weight: 59.8748 kg

DRUGS (4)
  1. TIKOSYN [Suspect]
     Indication: ATRIAL FIBRILLATION
     Dosage: 500 MCG (250 MCG, 2 IN 1 D)
     Dates: start: 20061124
  2. CELEXA (CITALOPHAM HYDROBROMIDE) [Concomitant]
  3. MAGNESIUM (MAGNESIUM) [Concomitant]
  4. ZINC (ZINC) [Concomitant]

REACTIONS (4)
  - CYSTITIS [None]
  - HEADACHE [None]
  - INSOMNIA [None]
  - TEMPOROMANDIBULAR JOINT SYNDROME [None]
